FAERS Safety Report 15288477 (Version 2)
Quarter: 2018Q3

REPORT INFORMATION
  Report Type: Spontaneous
  Country: PT (occurrence: PT)
  Receive Date: 20180817
  Receipt Date: 20180918
  Transmission Date: 20181010
  Serious: Yes (Hospitalization, Other)
  Sender: FDA-Public Use
  Company Number: PT-AUROBINDO-AUR-APL-2018-041855

PATIENT
  Age: 48 Year
  Sex: Male
  Weight: 61.4 kg

DRUGS (6)
  1. ITACITINIB [Suspect]
     Active Substance: ITACITINIB
     Dosage: 200 MILLIGRAM, DAILY
     Route: 048
     Dates: start: 20180308, end: 20180312
  2. VALGANCICLOVIR. [Suspect]
     Active Substance: VALGANCICLOVIR
     Indication: CYTOMEGALOVIRUS INFECTION
     Dosage: 900 MILLIGRAM
     Route: 065
     Dates: start: 20180406, end: 20180423
  3. ITACITINIB [Suspect]
     Active Substance: ITACITINIB
     Indication: GRAFT VERSUS HOST DISEASE
     Dosage: 200 MILLIGRAM, DAILY
     Route: 048
     Dates: start: 20180226, end: 20180302
  4. ITACITINIB [Suspect]
     Active Substance: ITACITINIB
     Dosage: 100 MILLIGRAM, DAILY (ON 07/MAY/2018, THERAPY WAS WITHDRAWN)
     Route: 048
     Dates: start: 20180413, end: 20180423
  5. PREDNISOLONE. [Suspect]
     Active Substance: PREDNISOLONE
     Indication: GRAFT VERSUS HOST DISEASE
     Dosage: 120 MILLIGRAM, DAILY
     Route: 048
     Dates: start: 20180224
  6. ITACITINIB [Suspect]
     Active Substance: ITACITINIB
     Indication: GRAFT VERSUS HOST DISEASE
     Dosage: 100 MILLIGRAM, DAILY
     Route: 048
     Dates: start: 20180303, end: 20180307

REACTIONS (2)
  - Bacteraemia [Recovered/Resolved]
  - Neutrophil count decreased [Recovered/Resolved]

NARRATIVE: CASE EVENT DATE: 20180423
